FAERS Safety Report 14301059 (Version 2)
Quarter: 2017Q4

REPORT INFORMATION
  Report Type: Spontaneous
  Country: US (occurrence: US)
  Receive Date: 20171219
  Receipt Date: 20171219
  Transmission Date: 20180321
  Serious: Yes (Other)
  Sender: FDA-Public Use
  Company Number: US-AUROBINDO-AUR-APL-2017-44768

PATIENT
  Age: 8 Year
  Sex: Male

DRUGS (16)
  1. TACROLIMUS. [Suspect]
     Active Substance: TACROLIMUS
     Indication: RENAL TRANSPLANT
     Dosage: TROUGH LEVELS 4?6 NG/ML
  2. ANTITHYMOCYTE IMMUNOGLOBULIN [Suspect]
     Active Substance: THYMOCYTE IMMUNE GLOBULIN NOS
     Indication: TRANSPLANT
     Dosage: UNK
     Route: 065
  3. TACROLIMUS. [Suspect]
     Active Substance: TACROLIMUS
     Dosage: 3 MG/KG, DAILY
     Route: 061
  4. SIROLIMUS. [Suspect]
     Active Substance: SIROLIMUS
     Indication: TRANSPLANT
     Dosage: UNK
     Route: 065
  5. BETAMETHASONE DIPROPIONATE. [Suspect]
     Active Substance: BETAMETHASONE DIPROPIONATE
     Dosage: UNK
     Route: 061
  6. MYCOPHENOLATE MOFETIL. [Suspect]
     Active Substance: MYCOPHENOLATE MOFETIL
     Indication: TRANSPLANT
     Dosage: 600 MG/M2 PER DOSE
  7. PREDNISONE. [Suspect]
     Active Substance: PREDNISONE
     Dosage: 5 MG, DAILY
     Route: 065
  8. METHYLPREDNISOLONE. [Suspect]
     Active Substance: METHYLPREDNISOLONE
     Indication: RENAL TRANSPLANT
     Dosage: 15 MG/KG, UNK
     Route: 065
  9. METHYLPREDNISOLONE. [Suspect]
     Active Substance: METHYLPREDNISOLONE
     Indication: TRANSPLANT
     Dosage: 10 MG/KG, UNK
     Route: 042
  10. MYCOPHENOLATE MOFETIL. [Suspect]
     Active Substance: MYCOPHENOLATE MOFETIL
     Indication: RENAL TRANSPLANT
     Dosage: 270 MG/M2 PER DOSE
  11. TACROLIMUS. [Suspect]
     Active Substance: TACROLIMUS
     Dosage: TARGET TROUGH 5?8 NG/ML
     Route: 065
  12. BETAMETHASONE DIPROPIONATE. [Suspect]
     Active Substance: BETAMETHASONE DIPROPIONATE
     Indication: TRANSPLANT
     Dosage: UNK
     Route: 065
  13. SIROLIMUS. [Suspect]
     Active Substance: SIROLIMUS
     Dosage: TARGET TROUGH 50?80 NG/ML
     Route: 065
  14. PREDNISONE. [Suspect]
     Active Substance: PREDNISONE
     Indication: TRANSPLANT
     Dosage: UNK
     Route: 065
  15. TACROLIMUS. [Suspect]
     Active Substance: TACROLIMUS
     Indication: TRANSPLANT
     Dosage: TROUGH LEVELS 10-12 NG/ML
  16. MYCOPHENOLATE MOFETIL. [Suspect]
     Active Substance: MYCOPHENOLATE MOFETIL
     Dosage: 205 MG/M2, PER DOSE

REACTIONS (2)
  - Urinary tract infection [Unknown]
  - Rhinovirus infection [Unknown]
